FAERS Safety Report 7939729-7 (Version None)
Quarter: 2011Q4

REPORT INFORMATION
  Report Type: 
  Country: None (occurrence: None)
  Receive Date: 20111125
  Receipt Date: 20111118
  Transmission Date: 20120403
  Serious: Yes (Other)
  Sender: FDA-Public Use
  Company Number: PHHY2010CA69272

PATIENT
  Sex: Female

DRUGS (3)
  1. ZOLEDRONOC ACID [Suspect]
     Dosage: UNK UKN, UNK
     Dates: start: 20091013
  2. ZOLEDRONOC ACID [Suspect]
     Indication: OSTEOPOROSIS
     Dosage: UNK UKN, UNK
     Route: 042
     Dates: start: 20081001
  3. ZOLEDRONOC ACID [Suspect]
     Dosage: UNK UKN, UNK
     Dates: start: 20110111

REACTIONS (7)
  - UPPER LIMB FRACTURE [None]
  - HAEMOGLOBIN DECREASED [None]
  - FALL [None]
  - RED BLOOD CELL COUNT DECREASED [None]
  - BLOOD PHOSPHORUS DECREASED [None]
  - WRIST FRACTURE [None]
  - HAEMATOCRIT DECREASED [None]
